FAERS Safety Report 6894997-8 (Version None)
Quarter: 2010Q3

REPORT INFORMATION
  Report Type: 
  Country: None (occurrence: None)
  Receive Date: 20100802
  Receipt Date: 20100731
  Transmission Date: 20110219
  Serious: Yes (Death, Hospitalization)
  Sender: FDA-Public Use
  Company Number: CO-ROCHE-718164

PATIENT
  Sex: Female

DRUGS (3)
  1. AVASTIN [Suspect]
     Indication: BREAST CANCER
     Dosage: LAST INFUSION PRIOR TO THE ADVERSE EVENT: 29 JUNE 2010
     Route: 042
     Dates: start: 20100602
  2. MORPHINE [Concomitant]
     Indication: PAIN
     Dosage: DRUG NAME: MORPHINA, FREQUENCY: PRN
     Route: 048
  3. TRAMADOL HYDROCHLORIDE [Concomitant]
     Indication: PAIN
     Dosage: FREQUENCY: PRN
     Route: 048

REACTIONS (1)
  - DISEASE PROGRESSION [None]
